FAERS Safety Report 16739496 (Version 3)
Quarter: 2020Q3

REPORT INFORMATION
  Report Type: Spontaneous
  Country: US (occurrence: US)
  Receive Date: 20190826
  Receipt Date: 20200818
  Transmission Date: 20201102
  Serious: Yes (Other)
  Sender: FDA-Public Use
  Company Number: US-B.I. PHARMACEUTICALS,INC./RIDGEFIELD-2019-BI-034444

PATIENT
  Age: 58 Year
  Sex: Female

DRUGS (29)
  1. ELIQUIS [Concomitant]
     Active Substance: APIXABAN
     Indication: PRODUCT USED FOR UNKNOWN INDICATION
     Dosage: TAKE 1 TABLET BY ORAL ROUTE 2 TIMES EVERY DA
     Route: 048
     Dates: start: 20181231
  2. OXYBUTYNIN CHLORIDE. [Concomitant]
     Active Substance: OXYBUTYNIN CHLORIDE
     Indication: PRODUCT USED FOR UNKNOWN INDICATION
     Dosage: TAKE 1 TABLET BY ORAL ROUTE EVERY DAY
     Route: 048
     Dates: start: 20160810
  3. NYSTATIN. [Concomitant]
     Active Substance: NYSTATIN
     Indication: PRODUCT USED FOR UNKNOWN INDICATION
     Dosage: 100,000 UNIT/GRAM TOPICAL POWDER, APPLY BY TOPICAL ROUTE 2 TIMES EVERY DAY TO THE AFFECTED AREA(S)
     Route: 061
     Dates: start: 20180102
  4. FLONASE ALLERGY RELIEF [Concomitant]
     Active Substance: FLUTICASONE PROPIONATE
     Indication: PRODUCT USED FOR UNKNOWN INDICATION
     Dosage: SPRAY 1 SPRAY BY INTRANASAL ROUTE EVERY DAY IN EACH NOSTRIL,
     Route: 045
     Dates: start: 20170125
  5. SINGULAIR [Concomitant]
     Active Substance: MONTELUKAST SODIUM
     Indication: PRODUCT USED FOR UNKNOWN INDICATION
     Dosage: TAKE 1 TABLET BY ORAL ROUTE EVERY DAY IN THE EVENING
     Route: 048
     Dates: start: 20160716
  6. PERCOCET [Concomitant]
     Active Substance: ACETAMINOPHEN\OXYCODONE HYDROCHLORIDE
     Indication: PRODUCT USED FOR UNKNOWN INDICATION
     Dosage: 10 MG?325 MG, TAKE 1 TABLET BY ORAL ROUTE EVERY 6 HOURS AS NEEDED
     Route: 048
  7. NYSTATIN. [Concomitant]
     Active Substance: NYSTATIN
     Dosage: 100,000 UNIT/GRAM TOPICAL POWDER, APPLY BY TOPICAL ROUTE 2 TIMES EVERY DAY TO THE AFFECTED AREA(S)
     Route: 061
     Dates: start: 20180502, end: 20190110
  8. ZOFRAN [Concomitant]
     Active Substance: ONDANSETRON HYDROCHLORIDE
     Indication: VOMITING
     Dosage: PLACE THE DISINTRGRATING TABLET ON TOP OF THE WHERE THEY WILL DISSOLVE, THEN SWALLOW
     Route: 048
     Dates: start: 20180608
  9. NORVASC [Concomitant]
     Active Substance: AMLODIPINE BESYLATE
     Indication: BLOOD PRESSURE MEASUREMENT
     Dosage: TAKE 1 TABLET EVERY DAY
     Route: 065
     Dates: start: 20180620
  10. ELIMITE [Concomitant]
     Active Substance: PERMETHRIN
     Indication: PRODUCT USED FOR UNKNOWN INDICATION
     Dosage: 5 % (MASSAGE INTO SKIN FROM HEAD TO SOLES OF FEET) ONCE LEAVE ON FOR 8?14 HR, THEN REMOVE BY WASHING
     Route: 061
     Dates: start: 20170816
  11. FLONASE ALLERGY RELIEF [Concomitant]
     Active Substance: FLUTICASONE PROPIONATE
     Dosage: NASAL SPRAY,SUSPENSION, INHALE 2 SPRAY BY INTRANASAL ROUTE EVERY DAY IN EACH NOSTRIL
     Route: 045
     Dates: start: 20180502
  12. LASIX [Concomitant]
     Active Substance: FUROSEMIDE
     Indication: PRODUCT USED FOR UNKNOWN INDICATION
     Dosage: TAKE 1 TABLET BY ORAL ROUTE EVERY DAY
     Route: 048
     Dates: start: 20180502
  13. LIPITOR [Concomitant]
     Active Substance: ATORVASTATIN CALCIUM
     Indication: PRODUCT USED FOR UNKNOWN INDICATION
     Dosage: TAKE 1 TABLET BY ORAL ROUTE EVERY DAY
     Route: 048
     Dates: start: 20170801
  14. VISTARIL [Concomitant]
     Active Substance: HYDROXYZINE PAMOATE
     Indication: PRODUCT USED FOR UNKNOWN INDICATION
     Dosage: TAKE 1 CAPSULE BY ORAL ROUTE 3 TIMES EVERY DAY
     Route: 048
     Dates: start: 20170816
  15. KETOCONAZOLE. [Concomitant]
     Active Substance: KETOCONAZOLE
     Indication: PRODUCT USED FOR UNKNOWN INDICATION
     Dosage: APPLY TO THE AFFECTED AREA(S), LATHER, LEAVE IN PLACE FOR 5 MINUTES, AND THEN RINSE OFF WITH WATER
     Route: 061
     Dates: start: 20160916, end: 20190110
  16. MUCINEX [Concomitant]
     Active Substance: GUAIFENESIN
     Indication: PRODUCT USED FOR UNKNOWN INDICATION
     Dosage: TAKE 1 TABLET BY ORAL ROUTE EVERY 12 HOURS AS NEEDED, EXTENDED RELEASE TABLET
     Route: 048
     Dates: start: 20180201, end: 20190110
  17. LYRICA [Concomitant]
     Active Substance: PREGABALIN
     Indication: PRODUCT USED FOR UNKNOWN INDICATION
     Dosage: TAKE 1 CAPSULE BY ORAL ROUTE 3 TIMES EVERY DAY
     Route: 048
  18. REQUIP [Concomitant]
     Active Substance: ROPINIROLE HYDROCHLORIDE
     Indication: PRODUCT USED FOR UNKNOWN INDICATION
     Dosage: TAKE 1 TABLET BY ORAL ROUTE EVERY DAY
     Route: 048
  19. IBUPROFEN. [Concomitant]
     Active Substance: IBUPROFEN
     Indication: PRODUCT USED FOR UNKNOWN INDICATION
     Dosage: TAKE 1 TABLET BY ORAL ROUTE 3 TIMES EVERY DAY WITH FOOD
     Route: 048
     Dates: start: 20180201
  20. LISINOPRIL. [Concomitant]
     Active Substance: LISINOPRIL
     Indication: BLOOD PRESSURE MEASUREMENT
     Dosage: TAKE 1 TABLET EVERY DAY
     Route: 065
     Dates: start: 20180620, end: 20190110
  21. TRESIBA [Concomitant]
     Active Substance: INSULIN DEGLUDEC
     Indication: PRODUCT USED FOR UNKNOWN INDICATION
     Dosage: INJECT 80 UNITS EVERY DAY
     Route: 065
     Dates: start: 20180529
  22. ZYRTEC [Concomitant]
     Active Substance: CETIRIZINE HYDROCHLORIDE
     Indication: PRODUCT USED FOR UNKNOWN INDICATION
     Dosage: TAKE 1 TABLET BY ORAL ROUTE EVERY DAY
     Route: 048
     Dates: start: 20160614
  23. PROAIR HFA [Concomitant]
     Active Substance: ALBUTEROL SULFATE
     Indication: PRODUCT USED FOR UNKNOWN INDICATION
     Dosage: AEROSOL INHALER, 2 PUFF 4 ? 6 HOURS AS NEEDED
     Route: 055
     Dates: start: 20171023
  24. JARDIANCE [Suspect]
     Active Substance: EMPAGLIFLOZIN
     Indication: TYPE 2 DIABETES MELLITUS
     Dosage: IN THE MORNING
     Route: 048
     Dates: start: 20180502
  25. APIDRA SOLOSTAR [Concomitant]
     Active Substance: INSULIN GLULISINE
     Indication: PRODUCT USED FOR UNKNOWN INDICATION
     Dosage: 100 UNITS/M 100 SOPN INJECT SUBCUTANEOUSLY THREE TIMES A DAY UPTO 20 UNITS EACH DOSE
     Route: 058
     Dates: start: 20180620
  26. ZANTAC [Concomitant]
     Active Substance: RANITIDINE HYDROCHLORIDE
     Indication: PRODUCT USED FOR UNKNOWN INDICATION
     Dosage: TAKE 1 TABLET BY ORAL ROUTE 2 TIMES EVERY DAY
     Route: 048
     Dates: start: 20180502
  27. ASPIRIN [ACETYLSALICYLIC ACID] [Concomitant]
     Active Substance: ASPIRIN
     Indication: PRODUCT USED FOR UNKNOWN INDICATION
     Dosage: TAKE 1 TABLET (81MG) BY ORAL ROUTE EVERY DAY
     Route: 048
     Dates: start: 20111205
  28. ALBUTEROL SULFATE HFA [Concomitant]
     Active Substance: ALBUTEROL SULFATE
     Indication: PRODUCT USED FOR UNKNOWN INDICATION
     Dosage: AEROSOL INHALER, 4?6 HOURS AS NEEDED
     Route: 055
     Dates: start: 20141210
  29. APIDRA [Concomitant]
     Active Substance: INSULIN GLULISINE
     Indication: PRODUCT USED FOR UNKNOWN INDICATION
     Dosage: 100 UNIT/ML SUBCUTANEOUS SOLUTION, SLIDING SCALE COVERAGE ? MAX 20 UNITS TID
     Route: 058
     Dates: start: 20170807

REACTIONS (1)
  - Necrotising soft tissue infection [Unknown]

NARRATIVE: CASE EVENT DATE: 20180904
